FAERS Safety Report 19459482 (Version 1)
Quarter: 2021Q2

REPORT INFORMATION
  Report Type: Spontaneous
  Country: BG (occurrence: BG)
  Receive Date: 20210624
  Receipt Date: 20210624
  Transmission Date: 20210717
  Serious: Yes (Other)
  Sender: FDA-Public Use
  Company Number: BG-ASTRAZENECA-2021A542330

PATIENT
  Sex: Male
  Weight: 62 kg

DRUGS (1)
  1. IMFINZI [Suspect]
     Active Substance: DURVALUMAB
     Indication: NEOPLASM MALIGNANT
     Route: 041

REACTIONS (3)
  - Pulmonary mass [Unknown]
  - Malignant neoplasm progression [Recovering/Resolving]
  - Radiation pneumonitis [Recovering/Resolving]
